FAERS Safety Report 20730596 (Version 2)
Quarter: 2022Q3

REPORT INFORMATION
  Report Type: Spontaneous
  Country: DE (occurrence: DE)
  Receive Date: 20220420
  Receipt Date: 20220718
  Transmission Date: 20221026
  Serious: Yes (Other)
  Sender: FDA-Public Use
  Company Number: DE-002147023-NVSC2022DE083584

PATIENT
  Age: 70 Year
  Sex: Male

DRUGS (1)
  1. RANIBIZUMAB [Suspect]
     Active Substance: RANIBIZUMAB
     Indication: Antiangiogenic therapy
     Route: 050

REACTIONS (4)
  - Visual impairment [Recovered/Resolved]
  - Retinal pigment epithelial tear [Unknown]
  - Detachment of retinal pigment epithelium [Unknown]
  - Scar [Unknown]
